FAERS Safety Report 10779337 (Version 1)
Quarter: 2015Q1

REPORT INFORMATION
  Report Type: Spontaneous
  Country: FR (occurrence: None)
  Receive Date: 20150206
  Receipt Date: 20150206
  Transmission Date: 20150721
  Serious: Yes (Death, Hospitalization)
  Sender: FDA-Public Use
  Company Number: NSR_01815_2015

PATIENT
  Age: 46 Year
  Sex: Female

DRUGS (2)
  1. PROPRANOLOL [Suspect]
     Active Substance: PROPRANOLOL\PROPRANOLOL HYDROCHLORIDE
     Indication: PRODUCT USED FOR UNKNOWN INDICATION
     Dosage: 2.24 G - 3.7 UMOL/L
  2. DIPOTASSIUM CHLORAZEPATE (POTASSIUM CHLORAZEPATE) (NOT SPECIFIED) [Suspect]
     Active Substance: CLORAZEPATE DIPOTASSIUM
     Indication: PRODUCT USED FOR UNKNOWN INDICATION

REACTIONS (9)
  - Hypotension [None]
  - Blood lactic acid increased [None]
  - Sinus bradycardia [None]
  - Cardio-respiratory arrest [None]
  - Shock [None]
  - Intentional overdose [None]
  - Toxicity to various agents [None]
  - Exposure via ingestion [None]
  - Multi-organ failure [None]
